FAERS Safety Report 9696114 (Version 1)
Quarter: 2013Q4

REPORT INFORMATION
  Report Type: Spontaneous
  Country: US (occurrence: US)
  Receive Date: 20131119
  Receipt Date: 20131119
  Transmission Date: 20140711
  Serious: No
  Sender: FDA-Public Use
  Company Number: US-GILEAD-2013-0087528

PATIENT
  Sex: Male

DRUGS (2)
  1. RANEXA [Suspect]
     Indication: PRODUCT USED FOR UNKNOWN INDICATION
     Dosage: 1000 MG, UNK
     Route: 048
     Dates: start: 201311
  2. RANEXA [Suspect]
     Dosage: 500 MG, UNK
     Route: 048
     Dates: end: 201311

REACTIONS (3)
  - Muscular weakness [Unknown]
  - Fall [Unknown]
  - Contusion [Unknown]
